FAERS Safety Report 4308894-5 (Version None)
Quarter: 2004Q1

REPORT INFORMATION
  Report Type: 
  Country: None (occurrence: None)
  Receive Date: 20040227
  Receipt Date: 20040216
  Transmission Date: 20041129
  Serious: Yes (Death)
  Sender: FDA-Public Use
  Company Number: 2004EU000358

PATIENT
  Age: 27 Year

DRUGS (2)
  1. PROGRAF [Suspect]
     Indication: RENAL TRANSPLANT
     Dosage: 0.06 MG/KG,
  2. PREDNISONE [Concomitant]

REACTIONS (13)
  - BLOOD LACTATE DEHYDROGENASE INCREASED [None]
  - BLOOD TRIGLYCERIDES INCREASED [None]
  - COUGH [None]
  - DYSPNOEA [None]
  - HEPATOSPLENOMEGALY [None]
  - HISTIOCYTOSIS HAEMATOPHAGIC [None]
  - LIVER DISORDER [None]
  - LUNG DISORDER [None]
  - PANCYTOPENIA [None]
  - SERUM FERRITIN INCREASED [None]
  - T-CELL LYMPHOMA [None]
  - THROMBOTIC MICROANGIOPATHY [None]
  - WEIGHT DECREASED [None]
